FAERS Safety Report 7158951-3 (Version None)
Quarter: 2010Q4

REPORT INFORMATION
  Report Type: 
  Country: None (occurrence: None)
  Receive Date: 20101214
  Receipt Date: 20101207
  Transmission Date: 20110411
  Serious: Yes (Death)
  Sender: FDA-Public Use
  Company Number: US-GILEAD-2010-0034007

PATIENT
  Sex: Female

DRUGS (18)
  1. LETAIRIS [Suspect]
     Indication: PULMONARY ARTERIAL HYPERTENSION
     Route: 048
     Dates: start: 20100219
  2. VIAGRA [Concomitant]
  3. COUMADIN [Concomitant]
  4. LASIX [Concomitant]
  5. METOPROLOL [Concomitant]
  6. VERAPAMIL [Concomitant]
  7. NORVASC [Concomitant]
  8. DIGOXIN [Concomitant]
  9. COREG [Concomitant]
  10. BROMFENAC [Concomitant]
  11. COMBIGAN [Concomitant]
  12. DUONEB [Concomitant]
  13. PROTONIX [Concomitant]
  14. POLYSPORIN OINTMENT [Concomitant]
  15. XALATAN [Concomitant]
  16. K-DUR [Concomitant]
  17. KLOR-CON [Concomitant]
  18. IRON SULFATETHIAMIN COMPOUND TAB [Concomitant]

REACTIONS (1)
  - CARDIAC FAILURE [None]
